FAERS Safety Report 18578413 (Version 1)
Quarter: 2020Q4

REPORT INFORMATION
  Report Type: Spontaneous
  Country: US (occurrence: US)
  Receive Date: 20201204
  Receipt Date: 20201204
  Transmission Date: 20210114
  Serious: No
  Sender: FDA-Public Use
  Company Number: US-DRREDDYS-USA/USA/20/0129134

PATIENT
  Age: 56 Year

DRUGS (1)
  1. OMEPRAZOLE. [Suspect]
     Active Substance: OMEPRAZOLE
     Indication: PRODUCT USED FOR UNKNOWN INDICATION
     Route: 048

REACTIONS (4)
  - Gout [Recovered/Resolved]
  - Peripheral swelling [Recovered/Resolved]
  - Feeding disorder [Recovered/Resolved]
  - Joint swelling [Recovered/Resolved]
